FAERS Safety Report 11092686 (Version 1)
Quarter: 2015Q2

REPORT INFORMATION
  Report Type: Spontaneous
  Country: HK (occurrence: None)
  Receive Date: 20150504
  Receipt Date: 20150504
  Transmission Date: 20150821
  Serious: Yes (Hospitalization)
  Sender: FDA-Public Use
  Company Number: IPC201504-000234

PATIENT
  Age: 45 Year
  Sex: Male

DRUGS (2)
  1. PROPRANOLOL HYDROCHLORIDE (PROPRANOLOL HYDROCHLORIDE) (PROPRANOLOL HYDROCHLORIDE) [Suspect]
     Active Substance: PROPRANOLOL HYDROCHLORIDE
  2. DOTHIEPIN [Suspect]
     Active Substance: DOTHIEPIN\DOTHIEPIN HYDROCHLORIDE

REACTIONS (6)
  - Haemodynamic instability [None]
  - Poisoning [None]
  - Cardiac arrest [None]
  - Seizure [None]
  - Cardiotoxicity [None]
  - Brain injury [None]
